FAERS Safety Report 6915935-5 (Version None)
Quarter: 2010Q3

REPORT INFORMATION
  Report Type: 
  Country: None (occurrence: None)
  Receive Date: 20100810
  Receipt Date: 20100729
  Transmission Date: 20110219
  Serious: Yes (Hospitalization, Other)
  Sender: FDA-Public Use
  Company Number: US-SANOFI-AVENTIS-2010SA045438

PATIENT
  Age: 71 Year
  Sex: Male

DRUGS (5)
  1. ZOLPIDEM TARTRATE [Suspect]
     Indication: INSOMNIA
     Route: 048
     Dates: start: 20090101, end: 20100729
  2. ZOLPIDEM TARTRATE [Suspect]
     Dosage: 2 PILLS AT THE ONCE
     Route: 048
     Dates: start: 20100728, end: 20100728
  3. LIPITOR [Concomitant]
  4. PRILOSEC [Concomitant]
  5. ALL OTHER THERAPEUTIC PRODUCTS [Concomitant]

REACTIONS (7)
  - ABNORMAL BEHAVIOUR [None]
  - APHASIA [None]
  - DEHYDRATION [None]
  - DRUG WITHDRAWAL CONVULSIONS [None]
  - HALLUCINATION [None]
  - INCORRECT DOSE ADMINISTERED [None]
  - REBOUND EFFECT [None]
